FAERS Safety Report 9728236 (Version 1)
Quarter: 2013Q4

REPORT INFORMATION
  Report Type: Spontaneous
  Country: GB (occurrence: GB)
  Receive Date: 20131204
  Receipt Date: 20131204
  Transmission Date: 20140711
  Serious: Yes (Life-Threatening, Hospitalization)
  Sender: FDA-Public Use
  Company Number: GB-JNJFOC-20131118616

PATIENT
  Age: 19 Year
  Sex: Female

DRUGS (18)
  1. REMICADE [Suspect]
     Indication: BEHCET^S SYNDROME
     Route: 042
     Dates: start: 20130408, end: 20130408
  2. BETAMETHASONE [Concomitant]
     Route: 065
  3. CASPOFUNGIN [Concomitant]
     Route: 042
     Dates: start: 20130408, end: 20130413
  4. CO-AMOXICLAV [Concomitant]
     Route: 065
  5. CYCLIZINE [Concomitant]
     Route: 065
  6. DIAZEPAM [Concomitant]
     Route: 065
  7. FLUCONAZOLE [Concomitant]
     Route: 065
  8. HYDROCORTISONE [Concomitant]
     Route: 065
     Dates: start: 20130407
  9. METHYLPREDNISOLONE [Concomitant]
     Route: 065
     Dates: start: 20130325, end: 20130327
  10. METRONIDAZOLE [Concomitant]
     Route: 065
  11. MIDAZOLAM [Concomitant]
     Indication: CONVULSION
     Route: 042
  12. MYCOPHENOLATE MOFETIL [Concomitant]
     Route: 065
  13. PHENYTOIN [Concomitant]
     Indication: CONVULSION
     Route: 042
     Dates: start: 20130411
  14. PREDNISOLONE [Concomitant]
     Route: 065
  15. TAZOCIN [Concomitant]
     Route: 042
     Dates: start: 20130402, end: 20130413
  16. TEICOPLANIN [Concomitant]
     Route: 042
     Dates: start: 20130402, end: 20130413
  17. THIAMINE [Concomitant]
     Route: 048
  18. TIGECYCLINE [Concomitant]
     Route: 065

REACTIONS (5)
  - Posterior reversible encephalopathy syndrome [Recovered/Resolved]
  - Infection [Unknown]
  - Status epilepticus [Recovered/Resolved]
  - Blood pressure increased [Recovered/Resolved]
  - Off label use [Unknown]
